FAERS Safety Report 5406105-0 (Version None)
Quarter: 2007Q3

REPORT INFORMATION
  Report Type: 
  Country: None (occurrence: None)
  Receive Date: 20070806
  Receipt Date: 20070724
  Transmission Date: 20080115
  Serious: Yes (Other)
  Sender: FDA-Public Use
  Company Number: JP-ROCHE-499445

PATIENT
  Age: 54 Year
  Sex: Female

DRUGS (4)
  1. TAMIFLU [Suspect]
     Route: 048
     Dates: start: 20070228, end: 20070228
  2. ALLEGRA [Concomitant]
     Dosage: GENERIC NAME REPORTED AS: FEXOFENADINE HYDROCHLORIDE.
     Route: 048
     Dates: start: 20070228, end: 20070228
  3. MEDICON [Concomitant]
     Dosage: GENERIC NAME: DEXTROMETHORPHAN HYDROBROMIDE.
     Route: 048
     Dates: start: 20070228, end: 20070228
  4. SELBEX [Concomitant]
     Route: 048
     Dates: start: 20070228, end: 20070228

REACTIONS (2)
  - ALTERED STATE OF CONSCIOUSNESS [None]
  - BLOOD PRESSURE DECREASED [None]
